FAERS Safety Report 8093779-1 (Version None)
Quarter: 2012Q1

REPORT INFORMATION
  Report Type: 
  Country: None (occurrence: None)
  Receive Date: 20120131
  Receipt Date: 20120103
  Transmission Date: 20120608
  Serious: Yes (Death, Life-Threatening, Hospitalization, Other)
  Sender: FDA-Public Use
  Company Number: US-AMGEN-USASP2011023090

PATIENT
  Age: 67 Year
  Sex: Female
  Weight: 69.1 kg

DRUGS (2)
  1. PACLITAXEL [Concomitant]
     Dosage: UNK
     Dates: start: 20100927
  2. NPLATE [Suspect]
     Indication: PRODUCT USED FOR UNKNOWN INDICATION
     Dosage: 0.1 MUG/KG, UNK
     Dates: start: 20100420, end: 20101019

REACTIONS (15)
  - BONE MARROW FAILURE [None]
  - CONFUSIONAL STATE [None]
  - ASCITES [None]
  - NAUSEA [None]
  - PYREXIA [None]
  - DIARRHOEA [None]
  - JAUNDICE [None]
  - AGITATION [None]
  - RESPIRATORY ARREST [None]
  - ABDOMINAL DISTENSION [None]
  - TOXICITY TO VARIOUS AGENTS [None]
  - CONJUNCTIVITIS [None]
  - METASTASES TO CENTRAL NERVOUS SYSTEM [None]
  - CARDIAC ARREST [None]
  - LUNG NEOPLASM MALIGNANT [None]
